FAERS Safety Report 20589111 (Version 1)
Quarter: 2022Q1

REPORT INFORMATION
  Report Type: Spontaneous
  Country: US (occurrence: None)
  Receive Date: 20220311
  Receipt Date: 20220311
  Transmission Date: 20220423
  Serious: Yes (Other)
  Sender: FDA-Public Use
  Company Number: None

PATIENT
  Age: 79 Year
  Sex: Female

DRUGS (12)
  1. AMBRISENTAN [Suspect]
     Active Substance: AMBRISENTAN
     Indication: Pulmonary hypertension
     Dosage: FREQUENCY : DAILY;?
     Route: 048
     Dates: start: 20160129, end: 20220311
  2. SILDENAFIL [Concomitant]
     Active Substance: SILDENAFIL
  3. UPTRAVI [Concomitant]
     Active Substance: SELEXIPAG
  4. PANTOPRAZOLE [Concomitant]
     Active Substance: PANTOPRAZOLE
  5. FERROUS SULFATE [Concomitant]
     Active Substance: FERROUS SULFATE
  6. SUCRALFATE [Concomitant]
     Active Substance: SUCRALFATE
  7. ATORVASTATIN [Concomitant]
     Active Substance: ATORVASTATIN
  8. CARVEDILOL [Concomitant]
  9. VITAMIN D3 [Concomitant]
     Active Substance: CHOLECALCIFEROL
  10. ASPIRIN [Concomitant]
     Active Substance: ASPIRIN
  11. TEMOVATE [Concomitant]
  12. HYDROCORTISONE [Concomitant]
     Active Substance: HYDROCORTISONE

REACTIONS (3)
  - Liver function test increased [None]
  - Therapy cessation [None]
  - Hepatic cirrhosis [None]

NARRATIVE: CASE EVENT DATE: 20220311
